FAERS Safety Report 5059345-7 (Version None)
Quarter: 2006Q3

REPORT INFORMATION
  Report Type: 
  Country: None (occurrence: None)
  Receive Date: 20060718
  Receipt Date: 20060705
  Transmission Date: 20061208
  Serious: Yes (Hospitalization)
  Sender: FDA-Public Use
  Company Number: 2006084504

PATIENT
  Age: 59 Year
  Sex: Female

DRUGS (11)
  1. EPIRUBICIN [Suspect]
     Indication: BREAST CANCER
     Dosage: 160 MG INTRAVENOUS ; 120 MG INTRAVENOUS
     Route: 042
     Dates: start: 20051227, end: 20051227
  2. EPIRUBICIN [Suspect]
     Indication: BREAST CANCER
     Dosage: 160 MG INTRAVENOUS ; 120 MG INTRAVENOUS
     Route: 042
     Dates: start: 20060117, end: 20060117
  3. EPIRUBICIN [Suspect]
     Indication: BREAST CANCER
     Dosage: 160 MG INTRAVENOUS ; 120 MG INTRAVENOUS
     Route: 042
     Dates: start: 20060210, end: 20060210
  4. FLUOROURACIL [Suspect]
     Indication: BREAST CANCER
     Dosage: 950 MG INTRAVENOUS ; 750 MG INTRAVENOUS
     Route: 042
     Dates: start: 20051227, end: 20051227
  5. FLUOROURACIL [Suspect]
     Indication: BREAST CANCER
     Dosage: 950 MG INTRAVENOUS ; 750 MG INTRAVENOUS
     Route: 042
     Dates: start: 20060117, end: 20060117
  6. FLUOROURACIL [Suspect]
     Indication: BREAST CANCER
     Dosage: 950 MG INTRAVENOUS ; 750 MG INTRAVENOUS
     Route: 042
     Dates: start: 20060210, end: 20060210
  7. CYCLOPHOSPHAMIDE [Suspect]
     Indication: BREAST CANCER
     Dosage: 950 MG INTRAVENOUS ; 750 MG INTRAVENOUS
     Route: 042
     Dates: start: 20051227, end: 20051227
  8. CYCLOPHOSPHAMIDE [Suspect]
     Indication: BREAST CANCER
     Dosage: 950 MG INTRAVENOUS ; 750 MG INTRAVENOUS
     Route: 042
     Dates: start: 20060117, end: 20060117
  9. CYCLOPHOSPHAMIDE [Suspect]
     Indication: BREAST CANCER
     Dosage: 950 MG INTRAVENOUS ; 750 MG INTRAVENOUS
     Route: 042
     Dates: start: 20060210, end: 20060210
  10. DEXRAZOXANE [Suspect]
     Indication: BREAST CANCER
     Dosage: 1600 MG INTRAVENOUS ; 1200 MG INTRAVENOUS
     Route: 042
     Dates: start: 20060117, end: 20060117
  11. DEXRAZOXANE [Suspect]
     Indication: BREAST CANCER
     Dosage: 1600 MG INTRAVENOUS ; 1200 MG INTRAVENOUS
     Route: 042
     Dates: start: 20060210, end: 20060210

REACTIONS (12)
  - ABNORMAL BEHAVIOUR [None]
  - BLOOD DISORDER [None]
  - CARCINOEMBRYONIC ANTIGEN INCREASED [None]
  - COMA [None]
  - CONFUSIONAL STATE [None]
  - DIARRHOEA [None]
  - DIHYDROPYRIMIDINE DEHYDROGENASE DEFICIENCY [None]
  - ENCEPHALITIS [None]
  - MUSCULOSKELETAL STIFFNESS [None]
  - PSYCHOTIC DISORDER [None]
  - PYREXIA [None]
  - RETICULOCYTE COUNT DECREASED [None]
